FAERS Safety Report 10800196 (Version 1)
Quarter: 2015Q1

REPORT INFORMATION
  Report Type: Spontaneous
  Country: US (occurrence: US)
  Receive Date: 20150216
  Receipt Date: 20150216
  Transmission Date: 20150721
  Serious: No
  Sender: FDA-Public Use
  Company Number: US-ALLERGAN-1416863US

PATIENT
  Age: 81 Year
  Sex: Male

DRUGS (4)
  1. COUMADINE [Concomitant]
     Active Substance: WARFARIN SODIUM
     Dosage: 2.5 MG, QD
     Route: 048
  2. RESTASIS [Suspect]
     Active Substance: CYCLOSPORINE
     Indication: DRY EYE
     Dosage: UNK
     Route: 047
     Dates: start: 20140726
  3. ATENOLOL. [Concomitant]
     Active Substance: ATENOLOL
     Indication: HYPERTENSION
     Dosage: 25 MG, BID
     Route: 048
  4. GABAPENTIN. [Concomitant]
     Active Substance: GABAPENTIN
     Indication: FACIAL NEURALGIA
     Dosage: 1200 MG, QD
     Route: 048

REACTIONS (3)
  - Headache [Unknown]
  - Eye irritation [Unknown]
  - Facial neuralgia [Unknown]

NARRATIVE: CASE EVENT DATE: 20140422
